FAERS Safety Report 21966416 (Version 1)
Quarter: 2023Q1

REPORT INFORMATION
  Report Type: Spontaneous
  Country: US (occurrence: US)
  Receive Date: 20230208
  Receipt Date: 20230208
  Transmission Date: 20230417
  Serious: Yes (Hospitalization)
  Sender: FDA-Public Use
  Company Number: US-drreddys-LIT/USA/23/0160484

PATIENT
  Age: 8 Year
  Sex: Male

DRUGS (13)
  1. ATOMOXETINE HYDROCHLORIDE [Suspect]
     Active Substance: ATOMOXETINE HYDROCHLORIDE
     Indication: Product used for unknown indication
  2. QUETIAPINE FUMARATE [Suspect]
     Active Substance: QUETIAPINE FUMARATE
     Indication: Product used for unknown indication
  3. GLYCOPYRROLATE [Suspect]
     Active Substance: GLYCOPYRROLATE
     Indication: Neuromuscular blockade reversal
  4. LIDOCAINE [Suspect]
     Active Substance: LIDOCAINE
     Indication: Product used for unknown indication
  5. NEOSTIGMINE METHYLSULFATE [Suspect]
     Active Substance: NEOSTIGMINE METHYLSULFATE
     Indication: Neuromuscular blockade reversal
     Dosage: (30 ?G/KG)
  6. LISDEXAMFETAMINE [Suspect]
     Active Substance: LISDEXAMFETAMINE
     Indication: Attention deficit hyperactivity disorder
  7. ARIPIPRAZOLE [Suspect]
     Active Substance: ARIPIPRAZOLE
     Indication: Product used for unknown indication
  8. CLONIDINE [Suspect]
     Active Substance: CLONIDINE
     Indication: Product used for unknown indication
  9. MIDAZOLAM [Suspect]
     Active Substance: MIDAZOLAM
     Indication: Product used for unknown indication
  10. SEVOFLURANE [Suspect]
     Active Substance: SEVOFLURANE
     Indication: General anaesthesia
     Route: 042
  11. ROCURONIUM [Suspect]
     Active Substance: ROCURONIUM BROMIDE
     Indication: Analgesic therapy
     Route: 045
  12. HYDROMORPHONE [Suspect]
     Active Substance: HYDROMORPHONE
     Indication: Analgesic therapy
  13. EPINEPHRINE [Suspect]
     Active Substance: EPINEPHRINE
     Indication: Product used for unknown indication

REACTIONS (2)
  - Accelerated idioventricular rhythm [Recovered/Resolved]
  - Product use in unapproved indication [Unknown]
